FAERS Safety Report 17914553 (Version 1)
Quarter: 2020Q2

REPORT INFORMATION
  Report Type: Spontaneous
  Country: ES (occurrence: ES)
  Receive Date: 20200618
  Receipt Date: 20200618
  Transmission Date: 20200714
  Serious: Yes (Other)
  Sender: FDA-Public Use
  Company Number: NVSC2020ES169608

PATIENT
  Age: 60 Year
  Sex: Male
  Weight: 78 kg

DRUGS (7)
  1. TOCILIZUMAB. [Suspect]
     Active Substance: TOCILIZUMAB
     Indication: CORONAVIRUS INFECTION
  2. CEFTRIAXONA [Suspect]
     Active Substance: CEFTRIAXONE
     Indication: CORONAVIRUS INFECTION
     Dosage: UNK (2GR/24H)
     Route: 042
     Dates: start: 20200321, end: 20200326
  3. CEFTRIAXONA [Suspect]
     Active Substance: CEFTRIAXONE
     Indication: PNEUMONIA
  4. TOCILIZUMAB. [Suspect]
     Active Substance: TOCILIZUMAB
     Indication: PNEUMONIA
     Dosage: 600 MG, ONCE/SINGLE (600MG DOSIS UNICA)
     Route: 042
     Dates: start: 20200326, end: 20200326
  5. HYDROXYCHLOROQUINE [Suspect]
     Active Substance: HYDROXYCHLOROQUINE
     Indication: CORONAVIRUS INFECTION
     Dosage: 400 MG, QD (400 MG/24H)
     Route: 048
     Dates: start: 20200321, end: 20200331
  6. AZITHROMYCIN ANHYDROUS. [Suspect]
     Active Substance: AZITHROMYCIN ANHYDROUS
     Indication: CORONAVIRUS INFECTION
     Dosage: 500 MG, QD (500 MG/24H)
     Route: 048
     Dates: start: 20200321, end: 20200324
  7. AZITHROMYCIN ANHYDROUS. [Suspect]
     Active Substance: AZITHROMYCIN ANHYDROUS
     Indication: PNEUMONIA

REACTIONS (1)
  - Hepatitis [Recovering/Resolving]

NARRATIVE: CASE EVENT DATE: 20200323
